FAERS Safety Report 9296712 (Version 1)
Quarter: 2013Q2

REPORT INFORMATION
  Report Type: Spontaneous
  Country: TW (occurrence: TW)
  Receive Date: 20130517
  Receipt Date: 20130517
  Transmission Date: 20140414
  Serious: Yes (Other)
  Sender: FDA-Public Use
  Company Number: PHHY2013TW024495

PATIENT
  Age: 63 Year
  Sex: Female

DRUGS (4)
  1. ALENDRONATE [Suspect]
     Indication: RHEUMATOID ARTHRITIS
     Dosage: 70 MG, WEEKLY
     Route: 048
  2. HYDROXYCHLOROQUINE [Concomitant]
  3. SULFASALAZINE [Concomitant]
  4. GLICLAZIDE [Concomitant]

REACTIONS (12)
  - Osteomyelitis chronic [Unknown]
  - Leukocytosis [Unknown]
  - Bacterial infection [Unknown]
  - Osteonecrosis of jaw [Recovered/Resolved]
  - Gingival bleeding [Recovered/Resolved]
  - Implant site pain [Recovered/Resolved]
  - Implant site erythema [Recovered/Resolved]
  - Exposed bone in jaw [Recovered/Resolved]
  - Periodontal destruction [Recovered/Resolved]
  - Sinusitis [Recovered/Resolved]
  - Femur fracture [Recovering/Resolving]
  - Pain in extremity [Unknown]
